FAERS Safety Report 8440539-5 (Version None)
Quarter: 2012Q2

REPORT INFORMATION
  Report Type: 
  Country: None (occurrence: None)
  Receive Date: 20120615
  Receipt Date: 20120605
  Transmission Date: 20120825
  Serious: Yes (Hospitalization, Other)
  Sender: FDA-Public Use
  Company Number: US-ABBOTT-12P-163-0942977-00

PATIENT
  Sex: Female
  Weight: 70.37 kg

DRUGS (8)
  1. HUMIRA [Suspect]
     Indication: POLYMYALGIA RHEUMATICA
     Route: 058
     Dates: start: 20120101, end: 20120502
  2. HUMIRA [Suspect]
  3. METHOTREXATE [Concomitant]
     Indication: PRODUCT USED FOR UNKNOWN INDICATION
  4. PREDNISONE TAB [Concomitant]
     Indication: POLYMYALGIA RHEUMATICA
  5. CYANOCOBALAMIN [Concomitant]
     Indication: POLYMYALGIA RHEUMATICA
  6. TREXALL [Concomitant]
     Indication: POLYMYALGIA RHEUMATICA
  7. CELEBREX [Concomitant]
     Indication: POLYMYALGIA RHEUMATICA
  8. EFFEXOR [Concomitant]
     Indication: DEPRESSION

REACTIONS (5)
  - OFF LABEL USE [None]
  - HEAD INJURY [None]
  - ARTHRALGIA [None]
  - FALL [None]
  - ARTHRITIS [None]
